FAERS Safety Report 9529745 (Version 1)
Quarter: 2013Q3

REPORT INFORMATION
  Report Type: Spontaneous
  Country: GB (occurrence: GB)
  Receive Date: 20130917
  Receipt Date: 20130917
  Transmission Date: 20140515
  Serious: Yes (Other)
  Sender: FDA-Public Use
  Company Number: GB-GLAXOSMITHKLINE-B0922915A

PATIENT
  Age: 76 Year
  Sex: Male

DRUGS (6)
  1. ACITRETIN [Suspect]
     Indication: SKIN CANCER
     Dosage: 10MG PER DAY
     Route: 048
     Dates: start: 20100618
  2. ATENOLOL [Concomitant]
     Dates: start: 2003
  3. ATORVASTATIN [Concomitant]
     Dates: start: 2003
  4. PERINDOPRIL [Concomitant]
     Dates: start: 2003
  5. ASPIRIN [Concomitant]
     Dates: start: 2003
  6. LEVOTHYROXINE [Concomitant]
     Dates: start: 2003

REACTIONS (1)
  - Deep vein thrombosis [Unknown]
